FAERS Safety Report 6624756-2 (Version None)
Quarter: 2010Q1

REPORT INFORMATION
  Report Type: 
  Country: None (occurrence: None)
  Receive Date: 20100310
  Receipt Date: 20100302
  Transmission Date: 20100710
  Serious: Yes (Other)
  Sender: FDA-Public Use
  Company Number: US-PFIZER INC-2010026800

PATIENT
  Sex: Male

DRUGS (6)
  1. VIAGRA [Suspect]
     Dosage: UNK
  2. INSULIN GLULISINE [Suspect]
     Dosage: 25 IU, 1X/DAY
  3. LANTUS [Suspect]
     Indication: TYPE 2 DIABETES MELLITUS
     Dosage: 50 IU, 1X/DAY
     Route: 058
  4. GLIMEPIRIDE [Concomitant]
     Indication: DIABETES MELLITUS
     Dosage: UNK
  5. PLAVIX [Concomitant]
     Dosage: UNK
  6. ATENOLOL [Concomitant]
     Indication: CARDIAC DISORDER
     Dosage: UNK

REACTIONS (7)
  - BLINDNESS [None]
  - CATARACT OPERATION [None]
  - CEREBROVASCULAR ACCIDENT [None]
  - HEART TRANSPLANT [None]
  - IMPLANTABLE DEFIBRILLATOR INSERTION [None]
  - INTRAOCULAR LENS IMPLANT [None]
  - TYPE 2 DIABETES MELLITUS [None]
